FAERS Safety Report 7134287-1 (Version None)
Quarter: 2010Q4

REPORT INFORMATION
  Report Type: 
  Country: None (occurrence: None)
  Receive Date: 20101203
  Receipt Date: 20101124
  Transmission Date: 20110411
  Serious: Yes (Hospitalization)
  Sender: FDA-Public Use
  Company Number: CH-ASTRAZENECA-2010SE56220

PATIENT
  Age: 64 Year
  Sex: Female

DRUGS (6)
  1. FASLODEX [Suspect]
     Route: 030
     Dates: start: 20101008, end: 20101008
  2. REDIMMUNE [Concomitant]
     Route: 042
  3. MST [Concomitant]
     Route: 048
  4. KONAKION [Concomitant]
     Route: 048
  5. IMPORTAL [Concomitant]
  6. ZOFRAN [Concomitant]

REACTIONS (1)
  - LIVER FUNCTION TEST ABNORMAL [None]
